FAERS Safety Report 14746961 (Version 2)
Quarter: 2018Q2

REPORT INFORMATION
  Report Type: Spontaneous
  Country: CA (occurrence: CA)
  Receive Date: 20180411
  Receipt Date: 20180424
  Transmission Date: 20180711
  Serious: Yes (Hospitalization)
  Sender: FDA-Public Use
  Company Number: CA-PFIZER INC-2018146873

PATIENT
  Age: 88 Year
  Sex: Female
  Weight: 181 kg

DRUGS (1)
  1. NITROGLYCERIN. [Suspect]
     Active Substance: NITROGLYCERIN
     Indication: DYSPNOEA
     Dosage: UNK

REACTIONS (2)
  - Drug ineffective for unapproved indication [Recovered/Resolved]
  - Chest pain [Recovered/Resolved]
